FAERS Safety Report 6484203-0 (Version None)
Quarter: 2009Q4

REPORT INFORMATION
  Report Type: 
  Country: None (occurrence: None)
  Receive Date: 20091209
  Receipt Date: 20091207
  Transmission Date: 20100525
  Serious: Yes (Hospitalization)
  Sender: FDA-Public Use
  Company Number: A0807898A

PATIENT
  Sex: Female

DRUGS (1)
  1. TYKERB [Suspect]
     Dosage: 1250MG PER DAY
     Route: 048
     Dates: start: 20090904

REACTIONS (4)
  - BACTERIAL INFECTION [None]
  - DIARRHOEA [None]
  - PAIN IN EXTREMITY [None]
  - PYREXIA [None]
